FAERS Safety Report 9766495 (Version 2)
Quarter: 2014Q2

REPORT INFORMATION
  Report Type: Spontaneous
  Country: US (occurrence: US)
  Receive Date: 20131217
  Receipt Date: 20140507
  Transmission Date: 20141212
  Serious: Yes (Other)
  Sender: FDA-Public Use
  Company Number: US-BAYER-2013-153032

PATIENT
  Age: 24 Year
  Sex: Female
  Weight: 59 kg

DRUGS (2)
  1. MIRENA [Suspect]
     Indication: CONTRACEPTION
     Dosage: 20 MCG/24HR, CONT
     Route: 015
     Dates: start: 201311
  2. COPPER + SILVER [Suspect]
     Indication: CONTRACEPTION

REACTIONS (2)
  - Post procedural haemorrhage [Recovered/Resolved]
  - Genital haemorrhage [Recovered/Resolved]
